FAERS Safety Report 6043093-0 (Version None)
Quarter: 2009Q1

REPORT INFORMATION
  Report Type: 
  Country: None (occurrence: None)
  Receive Date: 20090119
  Receipt Date: 20090105
  Transmission Date: 20090719
  Serious: Yes (Hospitalization, Other)
  Sender: FDA-Public Use
  Company Number: US-ROCHE-606516

PATIENT
  Sex: Male
  Weight: 55 kg

DRUGS (6)
  1. PEG-INTERFERON ALFA 2A (RO 25-8310) [Suspect]
     Route: 058
     Dates: start: 20081028
  2. RIBAVIRIN [Suspect]
     Route: 048
     Dates: start: 20081028, end: 20081230
  3. CIPROFLOXACIN [Suspect]
     Indication: DRUG USE FOR UNKNOWN INDICATION
     Dosage: DOSE: 750 MG BID X 10 D.
     Route: 065
     Dates: start: 20081217, end: 20081227
  4. GEODON [Concomitant]
  5. DEPAKOTE [Concomitant]
  6. ERYTROMYCIN [Concomitant]
     Dates: start: 20081210, end: 20081216

REACTIONS (3)
  - ACUTE PRERENAL FAILURE [None]
  - DEHYDRATION [None]
  - PNEUMONIA [None]
